FAERS Safety Report 19652064 (Version 1)
Quarter: 2021Q3

REPORT INFORMATION
  Report Type: Report from Study
  Country: US (occurrence: US)
  Receive Date: 20210803
  Receipt Date: 20210803
  Transmission Date: 20211014
  Serious: Yes (Death, Other)
  Sender: FDA-Public Use
  Company Number: US-SA-2021SA254909

PATIENT
  Age: 78 Year
  Sex: Male

DRUGS (2)
  1. NO STUDY DRUG GIVEN MKT [Suspect]
     Active Substance: UNSPECIFIED INGREDIENT
  2. ELITEK [Suspect]
     Active Substance: RASBURICASE
     Indication: BLOOD URIC ACID INCREASED
     Dosage: 6 MG, TOTAL (6 MG X 1 DAYS)

REACTIONS (2)
  - Incorrect dose administered [Unknown]
  - Tumour lysis syndrome [Fatal]
